FAERS Safety Report 21004212 (Version 3)
Quarter: 2022Q3

REPORT INFORMATION
  Report Type: Spontaneous
  Country: US (occurrence: US)
  Receive Date: 20220624
  Receipt Date: 20220823
  Transmission Date: 20221027
  Serious: No
  Sender: FDA-Public Use
  Company Number: US-BIOVITRUM-2021US10537

PATIENT
  Sex: Male

DRUGS (1)
  1. KINERET [Suspect]
     Active Substance: ANAKINRA
     Indication: Rheumatoid arthritis
     Dates: start: 20190405

REACTIONS (8)
  - Tendonitis [Unknown]
  - Exostosis [Unknown]
  - Arthralgia [Unknown]
  - Arthropod bite [Unknown]
  - Infection [Unknown]
  - Psoriasis [Unknown]
  - Platelet count decreased [Unknown]
  - Product dose omission issue [Unknown]
